FAERS Safety Report 23209847 (Version 1)
Quarter: 2023Q4

REPORT INFORMATION
  Report Type: Report from Study
  Country: CA (occurrence: CA)
  Receive Date: 20231121
  Receipt Date: 20231121
  Transmission Date: 20240110
  Serious: Yes (Other)
  Sender: FDA-Public Use
  Company Number: CA-TAKEDA-2022TUS039834

PATIENT
  Sex: Male

DRUGS (2)
  1. VEDOLIZUMAB [Suspect]
     Active Substance: VEDOLIZUMAB
     Indication: Colitis ulcerative
     Dosage: 300 MILLIGRAM
     Route: 042
     Dates: start: 20220223
  2. MESALAMINE [Concomitant]
     Active Substance: MESALAMINE
     Dosage: 120 MILLIGRAM, QD
     Route: 048
     Dates: start: 202103

REACTIONS (1)
  - Haematochezia [Unknown]
